APPROVED DRUG PRODUCT: FLUOXETINE HYDROCHLORIDE
Active Ingredient: FLUOXETINE HYDROCHLORIDE
Strength: EQ 20MG BASE
Dosage Form/Route: TABLET;ORAL
Application: A213286 | Product #002 | TE Code: AB
Applicant: AUROBINDO PHARMA LTD
Approved: Apr 8, 2020 | RLD: No | RS: Yes | Type: RX